FAERS Safety Report 26211945 (Version 1)
Quarter: 2025Q4

REPORT INFORMATION
  Report Type: Spontaneous
  Country: CN (occurrence: CN)
  Receive Date: 20251230
  Receipt Date: 20251230
  Transmission Date: 20260118
  Serious: Yes (Other)
  Sender: RANBAXY
  Company Number: CN-SUN PHARMACEUTICAL INDUSTRIES LTD-2025R1-543819

PATIENT
  Age: 51 Year
  Sex: Male

DRUGS (1)
  1. LENALIDOMIDE [Suspect]
     Active Substance: LENALIDOMIDE
     Indication: POEMS syndrome
     Dosage: 25 MILLIGRAM, DAILY
     Route: 065
     Dates: start: 20231228

REACTIONS (4)
  - Myelodysplastic syndrome [Unknown]
  - COVID-19 [Unknown]
  - Pancytopenia [Unknown]
  - Dysplasia [Unknown]
